FAERS Safety Report 23092943 (Version 1)
Quarter: 2023Q4

REPORT INFORMATION
  Report Type: Report from Study
  Country: EG (occurrence: EG)
  Receive Date: 20231021
  Receipt Date: 20231021
  Transmission Date: 20240110
  Serious: Yes (Disabling)
  Sender: FDA-Public Use
  Company Number: EG-002147023-NVSC2023EG224068

PATIENT
  Sex: Male

DRUGS (2)
  1. GILENYA [Suspect]
     Active Substance: FINGOLIMOD HYDROCHLORIDE
     Indication: Multiple sclerosis
     Dosage: 1 DOSAGE FORM, QD (START DATE: ALMOST 3 YEARS AGO)
     Route: 048
  2. OLAPEX [Concomitant]
     Indication: Bipolar disorder
     Dosage: 1 DOSAGE FORM, QD (START DATE: FROM 5 YEARS AGO)
     Route: 065

REACTIONS (5)
  - Gait inability [Not Recovered/Not Resolved]
  - Muscular weakness [Not Recovered/Not Resolved]
  - Lipids increased [Unknown]
  - Product dispensing issue [Recovered/Resolved]
  - Drug ineffective [Not Recovered/Not Resolved]
